FAERS Safety Report 13166048 (Version 3)
Quarter: 2018Q4

REPORT INFORMATION
  Report Type: Spontaneous
  Country: DE (occurrence: DE)
  Receive Date: 20170131
  Receipt Date: 20181113
  Transmission Date: 20190204
  Serious: Yes (Life-Threatening, Hospitalization, Other)
  Sender: FDA-Public Use
  Company Number: DE-ACCORD-047719

PATIENT
  Age: 78 Year
  Sex: Female

DRUGS (4)
  1. METHOTREXATE. [Suspect]
     Active Substance: METHOTREXATE
     Indication: RHEUMATOID ARTHRITIS
  2. PIPAMPERONE/PIPAMPERONE HYDROCHLORIDE [Interacting]
     Active Substance: PIPAMPERONE HYDROCHLORIDE
     Indication: AGITATION
     Dosage: INCREASED A DAY LATER TO 80 MG/DAY, SCHEDULED FOR THE NIGHT
  3. MEMANTINE HYDROCHLORIDE. [Concomitant]
     Active Substance: MEMANTINE HYDROCHLORIDE
     Indication: DEMENTIA ALZHEIMER^S TYPE
     Dosage: SCHEDULED FOR THE NIGHT
  4. ZOPICLONE [Interacting]
     Active Substance: ZOPICLONE
     Indication: AGITATION
     Dosage: SCHEDULED FOR THE NIGHT

REACTIONS (2)
  - Drug interaction [Unknown]
  - Hypothermia [Recovered/Resolved]
